FAERS Safety Report 8267563-X (Version None)
Quarter: 2012Q2

REPORT INFORMATION
  Report Type: 
  Country: None (occurrence: None)
  Receive Date: 20120405
  Receipt Date: 20120405
  Transmission Date: 20120825
  Serious: Yes (Hospitalization)
  Sender: FDA-Public Use
  Company Number: None

PATIENT
  Age: 86 Year
  Sex: Male
  Weight: 66.7 kg

DRUGS (1)
  1. DIGOXIN [Suspect]
     Indication: TACHYCARDIA
     Dosage: 0.125 MG EVERY DAY PO
     Route: 048
     Dates: start: 20120222, end: 20120330

REACTIONS (8)
  - CARDIOACTIVE DRUG LEVEL INCREASED [None]
  - HYPOPHAGIA [None]
  - TOXICITY TO VARIOUS AGENTS [None]
  - BRADYCARDIA [None]
  - FALL [None]
  - ELECTROCARDIOGRAM ST SEGMENT DEPRESSION [None]
  - DECREASED APPETITE [None]
  - DIARRHOEA [None]
